FAERS Safety Report 5704763-4 (Version None)
Quarter: 2008Q2

REPORT INFORMATION
  Report Type: 
  Country: None (occurrence: None)
  Receive Date: 20080414
  Receipt Date: 20080402
  Transmission Date: 20081010
  Serious: Yes (Other)
  Sender: FDA-Public Use
  Company Number: US-PFIZER INC-2007075126

PATIENT
  Sex: Male
  Weight: 86.2 kg

DRUGS (5)
  1. SUTENT [Suspect]
     Indication: RENAL CELL CARCINOMA
     Route: 048
  2. DYAZIDE [Concomitant]
  3. LISINOPRIL [Concomitant]
  4. FINASTERIDE [Concomitant]
  5. TERAZOSIN HCL [Concomitant]

REACTIONS (4)
  - DIARRHOEA [None]
  - FATIGUE [None]
  - NEPHRECTOMY [None]
  - ORAL PAIN [None]
